FAERS Safety Report 9562750 (Version 2)
Quarter: 2013Q4

REPORT INFORMATION
  Report Type: Spontaneous
  Country: US (occurrence: US)
  Receive Date: 20130927
  Receipt Date: 20131016
  Transmission Date: 20140711
  Serious: No
  Sender: FDA-Public Use
  Company Number: US-ASTRAZENECA-2013SE71699

PATIENT
  Age: 70 Year
  Sex: Female
  Weight: 28.1 kg

DRUGS (17)
  1. NEXIUM [Suspect]
     Indication: GASTROOESOPHAGEAL REFLUX DISEASE
     Route: 048
     Dates: start: 2001, end: 2012
  2. NEXIUM [Suspect]
     Indication: GASTRIC ULCER
     Route: 048
     Dates: start: 2001, end: 2012
  3. NEXIUM [Suspect]
     Indication: HERNIA
     Route: 048
     Dates: start: 2001, end: 2012
  4. OTHER MEDICATIONS [Suspect]
  5. SYNTHROID [Concomitant]
     Indication: THYROID DISORDER
     Route: 048
     Dates: start: 2003
  6. VIT D [Concomitant]
     Indication: VITAMIN SUPPLEMENTATION
     Route: 048
  7. LUNESTA [Concomitant]
     Indication: SLEEP DISORDER
     Route: 048
     Dates: start: 2008
  8. BI PAP [Concomitant]
     Dosage: HS
     Route: 050
  9. ISOSORBIDE [Concomitant]
     Indication: BLOOD PRESSURE ABNORMAL
     Route: 048
  10. LOSARTAN [Concomitant]
     Indication: BLOOD PRESSURE ABNORMAL
     Route: 048
  11. RANEXA [Concomitant]
     Indication: CARDIAC DISORDER
     Route: 048
  12. PREVASTATIN [Concomitant]
     Indication: BLOOD CHOLESTEROL ABNORMAL
     Route: 048
  13. PATNOPROZOLE [Concomitant]
     Indication: GASTRIC DISORDER
     Route: 048
  14. DEXILANT [Concomitant]
     Indication: GASTRIC DISORDER
  15. METOPROLOL TARTATE [Concomitant]
     Indication: BLOOD PRESSURE ABNORMAL
     Route: 048
  16. EFFIENT [Concomitant]
     Route: 048
  17. PLAVIX [Concomitant]

REACTIONS (2)
  - Intentional drug misuse [Unknown]
  - Drug ineffective [Unknown]
